FAERS Safety Report 19917090 (Version 3)
Quarter: 2022Q2

REPORT INFORMATION
  Report Type: Report from Study
  Country: US (occurrence: US)
  Receive Date: 20211005
  Receipt Date: 20220518
  Transmission Date: 20220720
  Serious: Yes (Hospitalization)
  Sender: FDA-Public Use
  Company Number: US-BIOGEN-2021BI01046475

PATIENT
  Age: 50 Year
  Sex: Female

DRUGS (10)
  1. VUMERITY [Interacting]
     Active Substance: DIROXIMEL FUMARATE
     Indication: Multiple sclerosis
     Route: 048
     Dates: start: 20210729
  2. VUMERITY [Interacting]
     Active Substance: DIROXIMEL FUMARATE
     Dosage: STARTER DOSE
     Route: 048
     Dates: start: 20210801, end: 20210901
  3. VUMERITY [Interacting]
     Active Substance: DIROXIMEL FUMARATE
     Dosage: MAINTENANCE DOSE
     Route: 048
     Dates: start: 20210804
  4. VUMERITY [Interacting]
     Active Substance: DIROXIMEL FUMARATE
     Route: 048
     Dates: start: 20210922
  5. AIMOVIG [Interacting]
     Active Substance: ERENUMAB-AOOE
     Indication: Product used for unknown indication
     Route: 065
  6. NEXIUM [Concomitant]
     Active Substance: ESOMEPRAZOLE MAGNESIUM
     Indication: Product used for unknown indication
     Route: 065
  7. VITAMIN B12 [Concomitant]
     Active Substance: CYANOCOBALAMIN
     Indication: Product used for unknown indication
     Route: 065
  8. ALBUTEROL SULFATE [Concomitant]
     Active Substance: ALBUTEROL SULFATE
     Indication: Product used for unknown indication
     Route: 065
  9. DIAZEPAM [Concomitant]
     Active Substance: DIAZEPAM
     Indication: Product used for unknown indication
     Route: 065
  10. Multivitamin womens [Concomitant]
     Indication: Product used for unknown indication
     Route: 065

REACTIONS (14)
  - Abdominal pain upper [Recovered/Resolved]
  - Rectal haemorrhage [Recovered/Resolved]
  - Large intestinal obstruction [Not Recovered/Not Resolved]
  - Drug interaction [Not Recovered/Not Resolved]
  - Constipation [Recovered/Resolved]
  - Colitis [Recovered/Resolved]
  - Large intestinal ulcer [Unknown]
  - Diarrhoea [Recovered/Resolved]
  - Weight increased [Unknown]
  - Depression [Unknown]
  - Cognitive disorder [Unknown]
  - Stress [Unknown]
  - Memory impairment [Unknown]
  - Pain [Unknown]

NARRATIVE: CASE EVENT DATE: 20210801
